FAERS Safety Report 5285371-9 (Version None)
Quarter: 2007Q2

REPORT INFORMATION
  Report Type: 
  Country: None (occurrence: None)
  Receive Date: 20070403
  Receipt Date: 20070328
  Transmission Date: 20071010
  Serious: Yes (Other)
  Sender: FDA-Public Use
  Company Number: US-SHR-US-2007-011263

PATIENT

DRUGS (1)
  1. CAMPATH [Suspect]

REACTIONS (1)
  - PULMONARY FIBROSIS [None]
